FAERS Safety Report 8632257 (Version 2)
Quarter: 2012Q4

REPORT INFORMATION
  Report Type: 
  Country: US (occurrence: US)
  Receive Date: 20120625
  Receipt Date: 20121026
  Transmission Date: 20130627
  Serious: Yes (Hospitalization)
  Sender: FDA-Public Use
  Company Number: US-BAYER-2012-059567

PATIENT
  Age: 25 Year
  Sex: Female
  Weight: 60.77 kg

DRUGS (1)
  1. YASMIN [Suspect]
     Dosage: UNK
     Dates: start: 200802, end: 20091215

REACTIONS (6)
  - Pulmonary embolism [None]
  - Pulmonary infarction [None]
  - Pain [None]
  - Haemoptysis [None]
  - Chest pain [None]
  - Hypopnoea [None]
